FAERS Safety Report 8947871 (Version 1)
Quarter: 2012Q4

REPORT INFORMATION
  Report Type: 
  Country: US (occurrence: US)
  Receive Date: 20121204
  Receipt Date: 20121204
  Transmission Date: 20130627
  Serious: Yes (Congenital Anomaly, Other)
  Sender: FDA-Public Use
  Company Number: US-PFIZER INC-2012300479

PATIENT
  Sex: Male
  Weight: 3 kg

DRUGS (10)
  1. ZOLOFT [Suspect]
     Indication: DEPRESSION
     Dosage: 100 mg, 1x/day
     Route: 064
     Dates: start: 20081016
  2. ZOLOFT [Suspect]
     Dosage: 200 mg, 2x/day
     Route: 064
     Dates: start: 20081213
  3. ZOLOFT [Suspect]
     Dosage: 150 mg, 1x/day
     Route: 064
     Dates: start: 20090129
  4. RISPERDAL [Concomitant]
     Dosage: 3 mg, UNK
     Route: 064
     Dates: start: 20090415
  5. RISPERDAL [Concomitant]
     Dosage: 2 mg, UNK
     Route: 064
     Dates: start: 20090917
  6. TRAZODONE [Concomitant]
     Dosage: 200 mg, 1x/day at night
     Route: 064
     Dates: start: 20090528
  7. TRAZODONE [Concomitant]
     Dosage: 100 mg, UNK
     Route: 064
     Dates: start: 20090720
  8. AMBIEN [Concomitant]
     Dosage: 10 mg, at night
     Route: 064
     Dates: start: 20090528
  9. KLONOPIN [Concomitant]
     Dosage: 0.5 mg, 2x/day
     Route: 064
     Dates: start: 20090528
  10. XANAX [Concomitant]
     Dosage: 1 mg, 1x/day
     Route: 064
     Dates: start: 20090911

REACTIONS (5)
  - Maternal exposure timing unspecified [Unknown]
  - Foetal heart rate abnormal [Unknown]
  - Convulsion [Unknown]
  - Atrial septal defect [Unknown]
  - Sleep apnoea syndrome [Unknown]
